FAERS Safety Report 7923764-9 (Version None)
Quarter: 2011Q4

REPORT INFORMATION
  Report Type: 
  Country: None (occurrence: None)
  Receive Date: 20111117
  Receipt Date: 20110208
  Transmission Date: 20120403
  Serious: No
  Sender: FDA-Public Use
  Company Number: US-AMGEN-USASP2011007617

PATIENT
  Age: 39 Year
  Sex: Female

DRUGS (1)
  1. ENBREL [Suspect]
     Indication: RHEUMATOID ARTHRITIS
     Dosage: 50 MG, QWK
     Dates: start: 20080301

REACTIONS (8)
  - HYPERSENSITIVITY [None]
  - DIARRHOEA [None]
  - THYROID DISORDER [None]
  - ABDOMINAL DISCOMFORT [None]
  - HEADACHE [None]
  - RHEUMATOID ARTHRITIS [None]
  - NAUSEA [None]
  - MIGRAINE [None]
